FAERS Safety Report 7137983-5 (Version None)
Quarter: 2010Q4

REPORT INFORMATION
  Report Type: 
  Country: None (occurrence: None)
  Receive Date: 20101206
  Receipt Date: 20101130
  Transmission Date: 20110411
  Serious: Yes (Death, Other)
  Sender: FDA-Public Use
  Company Number: US-GENZYME-FLUD-1000470

PATIENT
  Age: 48 Year
  Sex: Female

DRUGS (6)
  1. FLUDARA [Suspect]
     Indication: METASTATIC MALIGNANT MELANOMA
     Dosage: 25 MG/M2, QDX5
     Route: 065
  2. FLUDARA [Suspect]
     Dosage: 25 MG/M2, QDX5
     Route: 065
  3. CYCLOPHOSPHAMIDE [Suspect]
     Indication: METASTATIC MALIGNANT MELANOMA
     Dosage: 60 MG/KG, QDX2
     Route: 065
  4. CYCLOPHOSPHAMIDE [Suspect]
     Dosage: 60 MG/KG, QDX2
     Route: 065
  5. PROLEUKIN [Suspect]
     Indication: METASTATIC MALIGNANT MELANOMA
     Dosage: UNK
     Route: 065
  6. PROLEUKIN [Suspect]
     Dosage: UNK
     Route: 065

REACTIONS (8)
  - HYPOAESTHESIA [None]
  - MALIGNANT MELANOMA [None]
  - MALIGNANT NEOPLASM PROGRESSION [None]
  - MUSCULAR WEAKNESS [None]
  - NERVOUS SYSTEM DISORDER [None]
  - OPTIC NERVE DISORDER [None]
  - RETINAL DEGENERATION [None]
  - VISUAL ACUITY REDUCED [None]
